FAERS Safety Report 4270131-8 (Version None)
Quarter: 2004Q1

REPORT INFORMATION
  Report Type: 
  Country: None (occurrence: None)
  Receive Date: 20040112
  Receipt Date: 20040112
  Transmission Date: 20041129
  Serious: Yes (Hospitalization)
  Sender: FDA-Public Use
  Company Number: None

PATIENT
  Age: 81 Year
  Sex: Male

DRUGS (4)
  1. NAPROXEN [Suspect]
     Indication: PAIN
     Dosage: 500 MG BID
     Dates: start: 20010101
  2. RANITIDINE [Concomitant]
  3. SINEMET [Concomitant]
  4. FLOMAX [Concomitant]

REACTIONS (1)
  - GASTROINTESTINAL HAEMORRHAGE [None]
